FAERS Safety Report 5762919-9 (Version None)
Quarter: 2008Q2

REPORT INFORMATION
  Report Type: 
  Country: None (occurrence: None)
  Receive Date: 20080609
  Receipt Date: 20080528
  Transmission Date: 20081010
  Serious: Yes (Disabling, Other)
  Sender: FDA-Public Use
  Company Number: GB-PFIZER INC-2007014129

PATIENT
  Sex: Male
  Weight: 80 kg

DRUGS (5)
  1. GABAPENTIN [Suspect]
     Indication: NEURALGIA
     Route: 048
  2. DICLOFENAC SODIUM [Concomitant]
     Indication: PAIN
     Route: 048
  3. ACETAMINOPHEN [Concomitant]
     Indication: PAIN IN EXTREMITY
     Route: 048
  4. SOFRAMYCIN [Concomitant]
     Indication: EYE INFECTION
     Route: 047
  5. TRAMADOL HCL [Concomitant]
     Indication: PAIN IN EXTREMITY
     Route: 048
     Dates: start: 20060602, end: 20060710

REACTIONS (6)
  - ACTIVITIES OF DAILY LIVING IMPAIRED [None]
  - ARTHRALGIA [None]
  - ATAXIA [None]
  - DIPLOPIA [None]
  - MYALGIA [None]
  - NEUROPATHY PERIPHERAL [None]
